FAERS Safety Report 6930092-7 (Version None)
Quarter: 2010Q3

REPORT INFORMATION
  Report Type: 
  Country: None (occurrence: None)
  Receive Date: 20100813
  Receipt Date: 20100729
  Transmission Date: 20110219
  Serious: Yes (Other)
  Sender: FDA-Public Use
  Company Number: 010659

PATIENT
  Sex: Female

DRUGS (7)
  1. BUSULFEX [Suspect]
     Indication: STEM CELL TRANSPLANT
     Dosage: 0.8 MG/KG, Q6HR, INTRAVENOUS
     Route: 042
  2. CYCLOPHOSPHAMIDE [Concomitant]
  3. ETOPOSIDE [Concomitant]
  4. RITUXIMAB (RITUXIMAB) [Concomitant]
  5. IBRITUMOMAB TIUXETAN (IBRITUMOMAB TIUXETAN) [Concomitant]
  6. PHENYTOIN [Concomitant]
  7. MESNA [Concomitant]

REACTIONS (2)
  - NON-HODGKIN'S LYMPHOMA RECURRENT [None]
  - THROMBOCYTOPENIA [None]
